FAERS Safety Report 15132109 (Version 1)
Quarter: 2018Q4

REPORT INFORMATION
  Report Type: Spontaneous
  Country: US (occurrence: US)
  Receive Date: 20180711
  Receipt Date: 20180711
  Transmission Date: 20190204
  Serious: No
  Sender: FDA-Public Use
  Company Number: US-CEDIPROF, INC.-2051816

PATIENT
  Age: 54 Year
  Sex: Male
  Weight: 111.36 kg

DRUGS (4)
  1. GLIPIZIDE. [Concomitant]
     Active Substance: GLIPIZIDE
  2. NOVOLIN [Concomitant]
     Active Substance: INSULIN HUMAN
  3. LEVO-T [Suspect]
     Active Substance: LEVOTHYROXINE SODIUM
  4. VISTARIL [Concomitant]
     Active Substance: HYDROXYZINE PAMOATE

REACTIONS (2)
  - Hypertension [Unknown]
  - Tremor [Unknown]
